FAERS Safety Report 8395542-0 (Version None)
Quarter: 2012Q2

REPORT INFORMATION
  Report Type: 
  Country: None (occurrence: None)
  Receive Date: 20120530
  Receipt Date: 20110705
  Transmission Date: 20120825
  Serious: No
  Sender: FDA-Public Use
  Company Number: US-GLAXOSMITHKLINE-A0934948A

PATIENT
  Age: 77 Year
  Sex: Female

DRUGS (8)
  1. VENTOLIN [Suspect]
     Indication: ASTHMA
     Dosage: 1PUFF AS REQUIRED
     Route: 055
  2. LEVOTHYROXINE SODIUM [Concomitant]
  3. ADVAIR DISKUS 100/50 [Concomitant]
  4. OMEPRAZOLE [Concomitant]
  5. SIMVASTATIN [Concomitant]
  6. FEXOFENADINE [Concomitant]
  7. ASPIRIN [Concomitant]
  8. EVISTA [Concomitant]

REACTIONS (6)
  - DYSPNOEA [None]
  - HYPOPNOEA [None]
  - COUGH [None]
  - MALAISE [None]
  - ANXIETY [None]
  - PRODUCT QUALITY ISSUE [None]
